FAERS Safety Report 9630177 (Version 1)
Quarter: 2013Q4

REPORT INFORMATION
  Report Type: Spontaneous
  Country: IT (occurrence: IT)
  Receive Date: 20131017
  Receipt Date: 20131017
  Transmission Date: 20140711
  Serious: Yes (Hospitalization)
  Sender: FDA-Public Use
  Company Number: PHHY2013IT116928

PATIENT
  Age: 67 Year
  Sex: Female

DRUGS (5)
  1. ZOMETA [Suspect]
     Indication: METASTASES TO BONE
     Dosage: 1 U, MONTHLY
     Route: 042
     Dates: start: 20100101, end: 20121231
  2. ATORVASTATIN [Concomitant]
     Dosage: 10 MG, UNK
  3. XELODA [Concomitant]
     Dosage: 3 U, UNK
     Route: 048
  4. LUMINALE [Concomitant]
     Dosage: UNK UKN, UNK
  5. FRISIUM [Concomitant]
     Dosage: UNK UKN, UNK

REACTIONS (2)
  - Osteonecrosis of jaw [Recovering/Resolving]
  - Exposed bone in jaw [Unknown]
